FAERS Safety Report 6599372-1 (Version None)
Quarter: 2010Q1

REPORT INFORMATION
  Report Type: 
  Country: None (occurrence: None)
  Receive Date: 20100217
  Receipt Date: 20100209
  Transmission Date: 20100710
  Serious: Yes (Death)
  Sender: FDA-Public Use
  Company Number: B0633114A

PATIENT
  Age: 18 Year
  Sex: Male

DRUGS (4)
  1. TOPOTECAN HYDROCHLORIDE [Suspect]
     Indication: ACUTE MYELOID LEUKAEMIA
     Dosage: INTRAVENOUS
     Route: 042
  2. CLADRIBINE [Suspect]
     Indication: ACUTE MYELOID LEUKAEMIA
     Dosage: INTRAVENOUS
     Route: 042
  3. INTERLEUKIN-2 (FORMULATION UNKNOWN) INTERLEUKIN-2) [Suspect]
     Indication: ACUTE MYELOID LEUKAEMIA
  4. NEUPOGEN [Concomitant]

REACTIONS (1)
  - DEATH [None]
